FAERS Safety Report 7380387-0 (Version None)
Quarter: 2011Q1

REPORT INFORMATION
  Report Type: 
  Country: None (occurrence: None)
  Receive Date: 20110329
  Receipt Date: 20110315
  Transmission Date: 20110831
  Serious: Yes (Hospitalization)
  Sender: FDA-Public Use
  Company Number: US-JNJFOC-20110306970

PATIENT
  Sex: Male
  Weight: 72.58 kg

DRUGS (2)
  1. REMICADE [Suspect]
     Indication: CROHN'S DISEASE
     Route: 042
  2. ALLEGRA D 24 HOUR [Concomitant]
     Indication: MULTIPLE ALLERGIES
     Route: 048

REACTIONS (5)
  - INFUSION RELATED REACTION [None]
  - OSTEOLYSIS [None]
  - HOT FLUSH [None]
  - HIP ARTHROPLASTY [None]
  - BACK PAIN [None]
